FAERS Safety Report 24287750 (Version 1)
Quarter: 2024Q3

REPORT INFORMATION
  Report Type: Spontaneous
  Country: US (occurrence: None)
  Receive Date: 20240904
  Receipt Date: 20240904
  Transmission Date: 20241017
  Serious: Yes (Hospitalization)
  Sender: Public
  Company Number: None

PATIENT
  Age: 45 Year
  Sex: Female

DRUGS (2)
  1. TEZSPIRE [Suspect]
     Active Substance: TEZEPELUMAB-EKKO
     Route: 058
     Dates: start: 20240507
  2. CARAFATE SUS 1GM/10ML [Concomitant]

REACTIONS (4)
  - Pneumonia [None]
  - Chronic obstructive pulmonary disease [None]
  - Blood glucose increased [None]
  - Oxygen saturation decreased [None]

NARRATIVE: CASE EVENT DATE: 20240831
